FAERS Safety Report 22898114 (Version 4)
Quarter: 2024Q2

REPORT INFORMATION
  Report Type: Spontaneous
  Country: PH (occurrence: PH)
  Receive Date: 20230903
  Receipt Date: 20240417
  Transmission Date: 20240716
  Serious: Yes (Hospitalization, Other)
  Sender: FDA-Public Use
  Company Number: PH-002147023-NVSC2023PH136701

PATIENT
  Age: 56 Year
  Sex: Male
  Weight: 68 kg

DRUGS (36)
  1. LEVOFLOXACIN [Suspect]
     Active Substance: LEVOFLOXACIN
     Indication: Tuberculosis
     Dosage: 1000 MG
     Route: 048
     Dates: start: 20230529, end: 20230613
  2. LEVOFLOXACIN [Suspect]
     Active Substance: LEVOFLOXACIN
     Dosage: 1000 MG
     Route: 048
     Dates: start: 20230621
  3. LEVOFLOXACIN [Suspect]
     Active Substance: LEVOFLOXACIN
     Dosage: 1000 MG
     Route: 048
     Dates: start: 20230718, end: 20230803
  4. LEVOFLOXACIN [Suspect]
     Active Substance: LEVOFLOXACIN
     Dosage: 1000 MG, QD
     Route: 065
     Dates: start: 20230803
  5. LINEZOLID [Suspect]
     Active Substance: LINEZOLID
     Indication: Pulmonary tuberculosis
     Dosage: 1200 MG
     Route: 048
     Dates: start: 20230529, end: 20230613
  6. LINEZOLID [Suspect]
     Active Substance: LINEZOLID
     Dosage: 1200 MG
     Route: 048
     Dates: start: 20230629, end: 20230629
  7. LINEZOLID [Suspect]
     Active Substance: LINEZOLID
     Dosage: 1200 MG (REDUCED DOSE AT 600MG OD)
     Route: 048
     Dates: start: 20230620
  8. ALLOPURINOL [Concomitant]
     Active Substance: ALLOPURINOL
     Indication: Product used for unknown indication
     Dosage: 100 MG, OD
     Route: 065
     Dates: start: 20230804
  9. APIXABAN [Concomitant]
     Active Substance: APIXABAN
     Indication: Product used for unknown indication
     Dosage: 5 MG, BID
     Route: 065
     Dates: start: 20230704, end: 20230806
  10. APIXABAN [Concomitant]
     Active Substance: APIXABAN
     Dosage: 5 MG, BID
     Route: 065
     Dates: start: 20230704
  11. ASPIRIN [Concomitant]
     Active Substance: ASPIRIN
     Indication: Product used for unknown indication
     Dosage: UNK
     Route: 065
  12. ATORVASTATIN [Concomitant]
     Active Substance: ATORVASTATIN
     Dosage: 10 MG
     Route: 065
  13. ATORVASTATIN [Concomitant]
     Active Substance: ATORVASTATIN
     Indication: Product used for unknown indication
     Dosage: 20 MG, OD
     Route: 065
     Dates: start: 20230607
  14. ATORVASTATIN [Concomitant]
     Active Substance: ATORVASTATIN
     Dosage: 20 MG
     Route: 065
  15. ATORVASTATIN [Concomitant]
     Active Substance: ATORVASTATIN
     Dosage: 40 MG
     Route: 065
     Dates: start: 20230607
  16. ATORVASTATIN [Concomitant]
     Active Substance: ATORVASTATIN
     Dosage: 80 MG
     Route: 065
  17. CALCIUM CARBONATE [Concomitant]
     Active Substance: CALCIUM CARBONATE
     Indication: Hypocalcaemia
     Route: 065
  18. FERROUS SULFATE [Concomitant]
     Active Substance: FERROUS SULFATE
     Indication: Product used for unknown indication
     Dosage: 500 MG, BID
     Route: 048
  19. FERROUS SULFATE [Concomitant]
     Active Substance: FERROUS SULFATE
     Dosage: 325 MG, BID
     Route: 065
     Dates: start: 20230719
  20. GEMIGLIPTIN [Concomitant]
     Active Substance: GEMIGLIPTIN
     Indication: Product used for unknown indication
     Dosage: UNK
     Route: 065
  21. GLICLAZIDE [Concomitant]
     Active Substance: GLICLAZIDE
     Dosage: 30 MG
     Route: 065
  22. GLICLAZIDE [Concomitant]
     Active Substance: GLICLAZIDE
     Indication: Product used for unknown indication
     Dosage: 60 MG, OD
     Route: 065
     Dates: start: 20230607
  23. GLICLAZIDE [Concomitant]
     Active Substance: GLICLAZIDE
     Dosage: 80 MG
     Route: 065
  24. GLICLAZIDE MR STADA [Concomitant]
     Indication: Product used for unknown indication
     Dosage: 60 MG, OD
     Route: 065
     Dates: start: 20230607
  25. LOSARTAN [Concomitant]
     Active Substance: LOSARTAN
     Indication: Hypertension
     Dosage: 50 MG, 1X/DAY
     Route: 065
  26. MAGNESIUM [Concomitant]
     Active Substance: MAGNESIUM
     Indication: Hypomagnesaemia
     Dosage: 200 MG
     Route: 065
  27. MAGNESIUM [Concomitant]
     Active Substance: MAGNESIUM
     Indication: Product used for unknown indication
     Dosage: 5 G IN 230CC D5W TO RUN FOR 24HOURS
     Route: 065
  28. MELATONIN [Concomitant]
     Active Substance: MELATONIN
     Indication: Product used for unknown indication
     Dosage: 3 MG, OD
     Route: 065
     Dates: start: 20230607
  29. METFORMIN [Concomitant]
     Active Substance: METFORMIN HYDROCHLORIDE
     Dosage: 500 MG
     Route: 065
     Dates: start: 20230607, end: 20230614
  30. METFORMIN [Concomitant]
     Active Substance: METFORMIN HYDROCHLORIDE
     Indication: Product used for unknown indication
     Dosage: 500 MG, TID
     Route: 065
     Dates: start: 20230607, end: 20230614
  31. OMEPRAZOLE [Concomitant]
     Active Substance: OMEPRAZOLE
     Dosage: 40 MG IV Q24
     Route: 065
     Dates: start: 20230807
  32. OMEPRAZOLE [Concomitant]
     Active Substance: OMEPRAZOLE
     Indication: Product used for unknown indication
     Dosage: 40 MG ODAM
     Route: 065
     Dates: start: 20230806
  33. OMEPRAZOLE [Concomitant]
     Active Substance: OMEPRAZOLE
     Dosage: UNK
     Route: 065
     Dates: start: 20230808
  34. POTASSIUM CITRATE [Concomitant]
     Active Substance: POTASSIUM CITRATE
     Indication: Product used for unknown indication
     Dosage: 1080 MG, BID
     Route: 065
     Dates: start: 20230803
  35. ROSUVASTATIN [Concomitant]
     Active Substance: ROSUVASTATIN
     Indication: Dyslipidaemia
     Dosage: 10 MG, 1X/DAY
     Route: 065
     Dates: start: 20230607, end: 20230711
  36. SODIUM BICARBONATE [Concomitant]
     Active Substance: SODIUM BICARBONATE
     Indication: Product used for unknown indication
     Dosage: 100 MG, OD
     Route: 065
     Dates: start: 20230804

REACTIONS (5)
  - Dehydration [Recovered/Resolved]
  - Acute kidney injury [Recovered/Resolved]
  - Cholelithiasis [Recovered/Resolved]
  - Anaemia [Recovered/Resolved]
  - Acute kidney injury [Unknown]

NARRATIVE: CASE EVENT DATE: 20230613
